FAERS Safety Report 8611092-8 (Version None)
Quarter: 2012Q3

REPORT INFORMATION
  Report Type: 
  Country: None (occurrence: None)
  Receive Date: 20120822
  Receipt Date: 20120814
  Transmission Date: 20120928
  Serious: Yes (Life-Threatening, Hospitalization)
  Sender: FDA-Public Use
  Company Number: DE-MILLENNIUM PHARMACEUTICALS, INC.-2012-01920

PATIENT

DRUGS (5)
  1. VELCADE [Suspect]
     Indication: MULTIPLE MYELOMA
     Dosage: 2.6 MG, UNK
     Route: 042
     Dates: start: 20120104, end: 20120213
  2. MELPHALAN HYDROCHLORIDE [Concomitant]
     Indication: MULTIPLE MYELOMA
     Dosage: 18 MG, UNK
     Route: 048
     Dates: start: 20120104, end: 20120213
  3. PREDNISOLONE [Concomitant]
     Indication: MULTIPLE MYELOMA
     Dosage: 120 MG, UNK
     Route: 048
     Dates: start: 20120104, end: 20120213
  4. ACYCLOVIR [Concomitant]
     Dosage: UNK
     Dates: start: 20120104
  5. ZOMETA [Concomitant]
     Dosage: UNK
     Dates: start: 20120113

REACTIONS (1)
  - HYPERTENSIVE CRISIS [None]
